FAERS Safety Report 18186286 (Version 1)
Quarter: 2020Q3

REPORT INFORMATION
  Report Type: Spontaneous
  Country: US (occurrence: US)
  Receive Date: 20200824
  Receipt Date: 20200824
  Transmission Date: 20201103
  Serious: No
  Sender: FDA-Public Use
  Company Number: US-BIOVITRUM-2020US4475

PATIENT
  Age: 65 Year
  Sex: Female

DRUGS (6)
  1. KINERET [Suspect]
     Active Substance: ANAKINRA
     Indication: RHEUMATOID ARTHRITIS
     Route: 058
     Dates: start: 20200118, end: 20200311
  2. PILOCARPINE. [Concomitant]
     Active Substance: PILOCARPINE
  3. KINERET [Suspect]
     Active Substance: ANAKINRA
     Indication: FIBROMYALGIA
     Route: 058
     Dates: start: 20200416, end: 20200820
  4. PREDNISONE. [Concomitant]
     Active Substance: PREDNISONE
  5. CYCLOBENZAPRINE. [Concomitant]
     Active Substance: CYCLOBENZAPRINE
  6. HYDROMORPHONE [Concomitant]
     Active Substance: HYDROMORPHONE

REACTIONS (5)
  - Off label use [Recovered/Resolved]
  - Injection site pruritus [Unknown]
  - Diarrhoea [Recovered/Resolved]
  - Injection site pain [Unknown]
  - Eye infection [Unknown]

NARRATIVE: CASE EVENT DATE: 20200118
